FAERS Safety Report 14596615 (Version 1)
Quarter: 2018Q1

REPORT INFORMATION
  Report Type: Spontaneous
  Country: DE (occurrence: DE)
  Receive Date: 20180304
  Receipt Date: 20180304
  Transmission Date: 20180509
  Serious: Yes (Other)
  Sender: FDA-Public Use
  Company Number: DE-DEXPHARM-20180138

PATIENT
  Sex: Female

DRUGS (1)
  1. CHLORHEXAMED GEL 1% DENTAL GEL [Suspect]
     Active Substance: CHLORHEXIDINE GLUCONATE
     Indication: GINGIVAL RECESSION
     Dosage: DAILY DOSE: 10 DF DOSAGE FORM EVERY DAY

REACTIONS (2)
  - Product use issue [Unknown]
  - Squamous cell carcinoma of the oral cavity [Unknown]

NARRATIVE: CASE EVENT DATE: 20140101
